FAERS Safety Report 5207880-0 (Version None)
Quarter: 2007Q1

REPORT INFORMATION
  Report Type: 
  Country: None (occurrence: None)
  Receive Date: 20070112
  Receipt Date: 20070103
  Transmission Date: 20070707
  Serious: Yes (Other)
  Sender: FDA-Public Use
  Company Number: US-PFIZER INC-2007002560

PATIENT
  Sex: Male
  Weight: 74.8 kg

DRUGS (9)
  1. LIPITOR [Suspect]
     Indication: BLOOD CHOLESTEROL INCREASED
  2. CELEBREX [Suspect]
     Indication: OSTEOARTHRITIS
  3. ATENOLOL [Suspect]
     Indication: HYPERTENSION
     Dates: start: 20050101, end: 20060101
  4. FEMHRT [Concomitant]
  5. AMITRIPTYLINE HCL [Concomitant]
  6. SYNTHROID [Concomitant]
  7. TOPAMAX [Concomitant]
  8. ASPIRIN [Concomitant]
  9. BEXTRA [Concomitant]

REACTIONS (10)
  - BLOOD CHOLESTEROL INCREASED [None]
  - FATIGUE [None]
  - HYPERSENSITIVITY [None]
  - HYPERTENSION [None]
  - MALIGNANT MELANOMA STAGE I [None]
  - MUSCLE SPASMS [None]
  - OSTEOARTHRITIS [None]
  - PAIN [None]
  - PRURITUS [None]
  - URTICARIA [None]
